FAERS Safety Report 4955873-0 (Version None)
Quarter: 2006Q1

REPORT INFORMATION
  Report Type: 
  Country: None (occurrence: None)
  Receive Date: 20060327
  Receipt Date: 20060327
  Transmission Date: 20060701
  Serious: Yes (Other)
  Sender: FDA-Public Use
  Company Number: None

PATIENT
  Sex: Male
  Weight: 117.2095 kg

DRUGS (8)
  1. TEMAZEPAM [Suspect]
     Indication: INSOMNIA
     Dosage: 1 CAP QHS
     Dates: start: 20051028, end: 20051219
  2. ATENOLOL [Concomitant]
  3. CHLORZOXAZONE [Concomitant]
  4. CLONAZEPAM [Concomitant]
  5. FELODIPINE [Concomitant]
  6. METFORMIN [Concomitant]
  7. PENTAZOCINE 50/NALOXONE [Concomitant]
  8. QUETIAPINE [Concomitant]

REACTIONS (2)
  - ABNORMAL BEHAVIOUR [None]
  - NIGHTMARE [None]
